FAERS Safety Report 8196263-X (Version None)
Quarter: 2012Q1

REPORT INFORMATION
  Report Type: 
  Country: None (occurrence: None)
  Receive Date: 20120309
  Receipt Date: 20120306
  Transmission Date: 20120608
  Serious: No
  Sender: FDA-Public Use
  Company Number: US-PFIZER INC-2012045266

PATIENT
  Sex: Female

DRUGS (3)
  1. PRISTIQ [Suspect]
     Indication: DEPRESSION
     Dosage: 200 MG, QAM
     Route: 048
     Dates: start: 20100422
  2. PRISTIQ [Suspect]
     Dosage: 150MG, UNK
  3. PRISTIQ [Suspect]
     Dosage: 100MG, UNK

REACTIONS (3)
  - DEPRESSION [None]
  - BLOOD CHOLESTEROL INCREASED [None]
  - INCORRECT DOSE ADMINISTERED [None]
